FAERS Safety Report 21659924 (Version 1)
Quarter: 2022Q4

REPORT INFORMATION
  Report Type: Spontaneous
  Country: DE (occurrence: DE)
  Receive Date: 20221130
  Receipt Date: 20221130
  Transmission Date: 20230113
  Serious: Yes (Hospitalization, Other)
  Sender: FDA-Public Use
  Company Number: DE-STRIDES ARCOLAB LIMITED-2022SP015936

PATIENT
  Age: 73 Year
  Sex: Female

DRUGS (1)
  1. METOCLOPRAMIDE [Suspect]
     Active Substance: METOCLOPRAMIDE
     Indication: Gastritis
     Dosage: UNK
     Route: 065

REACTIONS (5)
  - Cognitive disorder [Recovered/Resolved]
  - Affective disorder [Recovered/Resolved]
  - Quality of life decreased [Recovered/Resolved]
  - Dystonia [Recovered/Resolved]
  - Depression [Recovered/Resolved]
